FAERS Safety Report 4290604-1 (Version None)
Quarter: 2004Q1

REPORT INFORMATION
  Report Type: 
  Country: None (occurrence: None)
  Receive Date: 20040209
  Receipt Date: 20040126
  Transmission Date: 20041129
  Serious: Yes (Hospitalization)
  Sender: FDA-Public Use
  Company Number: 04P-163-0248998-00

PATIENT
  Age: 16 Year
  Sex: Female

DRUGS (1)
  1. VALPROIC ACID (DEPAKENE) (VALPROIC ACID) (VALPROIC AID) [Suspect]
     Indication: BIPOLAR DISORDER
     Dosage: 5 GM, ONCE, ORAL
     Route: 048

REACTIONS (3)
  - ELECTROCARDIOGRAM ST SEGMENT DEPRESSION [None]
  - ELECTROCARDIOGRAM T WAVE INVERSION [None]
  - INTENTIONAL OVERDOSE [None]
